FAERS Safety Report 9551712 (Version 1)
Quarter: 2013Q3

REPORT INFORMATION
  Report Type: Spontaneous
  Country: US (occurrence: US)
  Receive Date: 20130925
  Receipt Date: 20130925
  Transmission Date: 20140515
  Serious: Yes (Other)
  Sender: FDA-Public Use
  Company Number: US-SANOFI-AVENTIS-2013SA093135

PATIENT
  Age: 59 Year
  Sex: Female

DRUGS (4)
  1. LANTUS SOLOSTAR [Suspect]
     Indication: TYPE 2 DIABETES MELLITUS
     Dosage: DOSE:40 UNIT(S)
     Route: 058
     Dates: start: 2006
  2. APIDRA SOLOSTAR [Suspect]
     Dosage: DOSE:10 UNIT(S)
     Route: 058
  3. SOLOSTAR [Concomitant]
     Indication: TYPE 2 DIABETES MELLITUS
     Dates: start: 2006
  4. SOLOSTAR [Concomitant]

REACTIONS (3)
  - Cataract [Unknown]
  - Visual acuity reduced [Unknown]
  - Overdose [Unknown]
